FAERS Safety Report 6667727-2 (Version None)
Quarter: 2010Q2

REPORT INFORMATION
  Report Type: 
  Country: None (occurrence: None)
  Receive Date: 20100405
  Receipt Date: 20100329
  Transmission Date: 20101027
  Serious: Yes (Other)
  Sender: FDA-Public Use
  Company Number: BR-ABBOTT-10P-020-0635446-00

PATIENT
  Sex: Female

DRUGS (1)
  1. PLENTY [Suspect]
     Indication: WEIGHT CONTROL
     Dosage: 15 MG
     Route: 048

REACTIONS (5)
  - COUGH [None]
  - DYSPNOEA [None]
  - PULMONARY HYPERTENSION [None]
  - RIGHT VENTRICULAR FAILURE [None]
  - TACHYCARDIA [None]
